FAERS Safety Report 8485964-1 (Version None)
Quarter: 2012Q3

REPORT INFORMATION
  Report Type: 
  Country: None (occurrence: None)
  Receive Date: 20120703
  Receipt Date: 20120625
  Transmission Date: 20120928
  Serious: Yes (Other)
  Sender: FDA-Public Use
  Company Number: US-BRISTOL-MYERS SQUIBB COMPANY-16488207

PATIENT
  Age: 72 Year
  Sex: Male
  Weight: 61 kg

DRUGS (1)
  1. ERBITUX [Suspect]
     Indication: OESOPHAGEAL CARCINOMA
     Dates: start: 20120314

REACTIONS (8)
  - RASH [None]
  - WEIGHT DECREASED [None]
  - THROAT TIGHTNESS [None]
  - WHEEZING [None]
  - DYSPNOEA [None]
  - POLLAKIURIA [None]
  - DYSPHONIA [None]
  - FATIGUE [None]
